FAERS Safety Report 6611593-8 (Version None)
Quarter: 2010Q1

REPORT INFORMATION
  Report Type: 
  Country: None (occurrence: None)
  Receive Date: 20100303
  Receipt Date: 20100303
  Transmission Date: 20100710
  Serious: Yes (Hospitalization)
  Sender: FDA-Public Use
  Company Number: PHHO2009SG13398

PATIENT
  Sex: Female
  Weight: 92.9 kg

DRUGS (6)
  1. ACZ885 ACZ+ [Suspect]
     Indication: GOUT
     Dosage: 200 MG, ONCE/SINGLE
     Route: 048
     Dates: start: 20090618
  2. SERETIDE [Concomitant]
  3. VENTOLIN [Concomitant]
  4. DIFFLAM [Concomitant]
  5. PARACETAMOL [Concomitant]
  6. MONTELUKAST [Concomitant]

REACTIONS (6)
  - LYMPHADENOPATHY [None]
  - NECK MASS [None]
  - ODYNOPHAGIA [None]
  - OROPHARYNGEAL PAIN [None]
  - PYREXIA [None]
  - TONSILLITIS [None]
